FAERS Safety Report 25502901 (Version 2)
Quarter: 2025Q4

REPORT INFORMATION
  Report Type: Spontaneous
  Country: US (occurrence: US)
  Receive Date: 20250702
  Receipt Date: 20251015
  Transmission Date: 20260117
  Serious: No
  Sender: GERON CORP
  Company Number: US-GERON CORPORATION-US-GER-25-000128

PATIENT
  Age: 82 Year
  Sex: Male

DRUGS (13)
  1. RYTELO [Suspect]
     Active Substance: IMETELSTAT SODIUM
     Indication: Myelodysplastic syndrome
     Dosage: UNK MILLIGRAM/KILOGRAM, 4W
     Route: 042
     Dates: start: 20250123, end: 20250327
  2. RYTELO [Suspect]
     Active Substance: IMETELSTAT SODIUM
     Dosage: 705 MILLIGRAM, 4W
     Route: 042
     Dates: start: 20250421, end: 20250527
  3. RYTELO [Suspect]
     Active Substance: IMETELSTAT SODIUM
     Dosage: 5.6 MILLIGRAM/KILOGRAM, 4W
     Route: 042
     Dates: start: 20250529
  4. RYTELO [Suspect]
     Active Substance: IMETELSTAT SODIUM
     Dosage: 564 MILLIGRAM, 4W
     Route: 042
     Dates: start: 20250609, end: 20250714
  5. RYTELO [Suspect]
     Active Substance: IMETELSTAT SODIUM
     Dosage: 564 MILLIGRAM, 4W
     Route: 042
     Dates: start: 20250728
  6. NORCO [Concomitant]
     Active Substance: ACETAMINOPHEN\HYDROCODONE BITARTRATE
     Indication: Product used for unknown indication
     Dosage: UNK, UNK
     Route: 065
  7. ATROVENT [Concomitant]
     Active Substance: IPRATROPIUM BROMIDE
     Indication: Product used for unknown indication
     Dosage: UNK, UNK
     Route: 065
  8. TOPROL XL [Concomitant]
     Active Substance: METOPROLOL SUCCINATE
     Indication: Product used for unknown indication
     Dosage: UNK, UNK
     Route: 065
  9. LIPITOR [Concomitant]
     Active Substance: ATORVASTATIN CALCIUM
     Indication: Product used for unknown indication
     Dosage: UNK, UNK
     Route: 065
  10. PLAVIX [Concomitant]
     Active Substance: CLOPIDOGREL BISULFATE
     Indication: Product used for unknown indication
     Dosage: UNK, UNK
     Route: 065
  11. FARXIGA [Concomitant]
     Active Substance: DAPAGLIFLOZIN PROPANEDIOL
     Indication: Product used for unknown indication
     Dosage: UNK, UNK
     Route: 065
  12. PROSCAR [Concomitant]
     Active Substance: FINASTERIDE
     Indication: Product used for unknown indication
     Dosage: UNK, UNK
     Route: 065
  13. TAMSULOSIN [Concomitant]
     Active Substance: TAMSULOSIN
     Indication: Product used for unknown indication
     Dosage: UNK, UNK
     Route: 065

REACTIONS (1)
  - Platelet count decreased [Not Recovered/Not Resolved]

NARRATIVE: CASE EVENT DATE: 20250327
